FAERS Safety Report 24944831 (Version 1)
Quarter: 2025Q1

REPORT INFORMATION
  Report Type: Spontaneous
  Country: EC (occurrence: EC)
  Receive Date: 20250208
  Receipt Date: 20250208
  Transmission Date: 20250408
  Serious: Yes (Death, Other)
  Sender: CELLTRION
  Company Number: EC-CELLTRION INC.-2025EC003559

PATIENT

DRUGS (2)
  1. HERZUMA [Suspect]
     Active Substance: TRASTUZUMAB-PKRB
     Indication: Breast cancer
     Route: 065
     Dates: end: 20240926
  2. PERTUZUMAB [Concomitant]
     Active Substance: PERTUZUMAB
     Indication: Breast cancer

REACTIONS (1)
  - Malignant neoplasm progression [Fatal]
